FAERS Safety Report 7502973-7 (Version None)
Quarter: 2011Q2

REPORT INFORMATION
  Report Type: 
  Country: None (occurrence: None)
  Receive Date: 20110525
  Receipt Date: 20100915
  Transmission Date: 20111010
  Serious: No
  Sender: FDA-Public Use
  Company Number: US-NOVEN-ALL1-2010-04907

PATIENT
  Sex: Female
  Weight: 68.027 kg

DRUGS (5)
  1. VITAMINS NOS [Concomitant]
     Dosage: UNK, 1X/DAY:QD
     Route: 048
  2. DAYTRANA [Suspect]
     Dosage: 30 MG, 1X/DAY:QD, USES WHOLE PATCH AT TIMES
     Route: 062
     Dates: start: 20100301
  3. BUSPAR [Concomitant]
     Dosage: 15 MG, 2X/DAY:BID
     Route: 048
     Dates: start: 20070101
  4. HORMONES [Concomitant]
     Dosage: UNK, 1X/DAY:QD
     Route: 048
     Dates: start: 20000101
  5. DAYTRANA [Suspect]
     Dosage: UNK MG, 1X/DAY:QD, 30 MG PATCH, CUT IN 1/2 OR 1/3; USES AT OTHER TIMES AS PRESCRIBED
     Route: 062
     Dates: start: 20100301

REACTIONS (4)
  - INSOMNIA [None]
  - WRONG TECHNIQUE IN DRUG USAGE PROCESS [None]
  - OFF LABEL USE [None]
  - DRUG PRESCRIBING ERROR [None]
